FAERS Safety Report 9648137 (Version 3)
Quarter: 2014Q1

REPORT INFORMATION
  Report Type: Spontaneous
  Country: US (occurrence: US)
  Receive Date: 20131028
  Receipt Date: 20140102
  Transmission Date: 20141002
  Serious: Yes (Other)
  Sender: FDA-Public Use
  Company Number: US-JNJFOC-20131014170

PATIENT
  Sex: Male
  Weight: 140.62 kg

DRUGS (5)
  1. STELARA [Suspect]
     Indication: PSORIASIS
     Dosage: WEEK 0 AND 4
     Route: 058
     Dates: start: 20130614
  2. AMLODIPINE [Concomitant]
     Route: 065
  3. CLOPIDOGREL [Concomitant]
     Route: 065
  4. METOPROLOL [Concomitant]
     Route: 065
  5. XARELTO [Concomitant]
     Route: 065

REACTIONS (1)
  - Coronary artery embolism [Recovered/Resolved]
